FAERS Safety Report 4499683-X (Version None)
Quarter: 2004Q4

REPORT INFORMATION
  Report Type: 
  Country: None (occurrence: None)
  Receive Date: 20041112
  Receipt Date: 20031013
  Transmission Date: 20050328
  Serious: Yes (Disabling, Other)
  Sender: FDA-Public Use
  Company Number: PHFR2003GB03996

PATIENT
  Age: 72 Year
  Sex: Male
  Weight: 63 kg

DRUGS (3)
  1. GLEEVEC [Suspect]
     Indication: CHRONIC MYELOID LEUKAEMIA
     Dosage: 400 MG/DAY
     Route: 048
     Dates: start: 20021218, end: 20030819
  2. ATENOLOL [Concomitant]
     Indication: ANGINA PECTORIS
     Dosage: 25 MG/DAY
     Route: 048
     Dates: start: 19850101
  3. ASPIRIN [Concomitant]
     Indication: ANGINA PECTORIS
     Dosage: 150MG/DAY
     Route: 048

REACTIONS (4)
  - CONJUNCTIVAL DISORDER [None]
  - LICHEN PLANUS [None]
  - MALAISE [None]
  - PRURITUS [None]
